FAERS Safety Report 9122975 (Version 1)
Quarter: 2013Q1

REPORT INFORMATION
  Report Type: Spontaneous
  Country: US (occurrence: US)
  Receive Date: 20130227
  Receipt Date: 20130227
  Transmission Date: 20140127
  Serious: No
  Sender: FDA-Public Use
  Company Number: US-GLAXOSMITHKLINE-A1004917A

PATIENT
  Sex: Female

DRUGS (4)
  1. VALTREX [Suspect]
     Indication: HERPES ZOSTER
     Dosage: 3CAPL PER DAY
     Route: 048
     Dates: start: 20121210
  2. LIPITOR [Concomitant]
  3. ESTRADIOL [Concomitant]
  4. ASPIRIN [Concomitant]

REACTIONS (1)
  - Abdominal discomfort [Unknown]
